FAERS Safety Report 23364483 (Version 1)
Quarter: 2024Q1

REPORT INFORMATION
  Report Type: Report from Study
  Country: US (occurrence: US)
  Receive Date: 20240104
  Receipt Date: 20240104
  Transmission Date: 20240410
  Serious: Yes (Hospitalization, Other)
  Sender: FDA-Public Use
  Company Number: US-ABBVIE-5566710

PATIENT
  Age: 52 Year
  Sex: Female

DRUGS (1)
  1. SKYRIZI [Suspect]
     Active Substance: RISANKIZUMAB-RZAA
     Indication: Crohn^s disease
     Dosage: FORM STRENGTH: 360 MILLIGRAM
     Route: 058
     Dates: end: 20231227

REACTIONS (5)
  - Cerebrovascular accident [Recovered/Resolved]
  - Product use issue [Not Recovered/Not Resolved]
  - Mucous stools [Unknown]
  - Transient ischaemic attack [Unknown]
  - Product quality issue [Unknown]

NARRATIVE: CASE EVENT DATE: 20231201
